FAERS Safety Report 4402882-6 (Version None)
Quarter: 2004Q3

REPORT INFORMATION
  Report Type: 
  Country: None (occurrence: None)
  Receive Date: 20040720
  Receipt Date: 20040720
  Transmission Date: 20050211
  Serious: Yes (Other)
  Sender: FDA-Public Use
  Company Number: None

PATIENT
  Age: 55 Year
  Sex: Male

DRUGS (1)
  1. ALEMTUZUMAB 30 MG [Suspect]
     Indication: TRANSPLANT
     Dosage: 30 MG X 1 IV
     Route: 042

REACTIONS (4)
  - BLOOD PRESSURE INCREASED [None]
  - CHILLS [None]
  - PYREXIA [None]
  - TACHYCARDIA [None]
